FAERS Safety Report 23076521 (Version 1)
Quarter: 2023Q4

REPORT INFORMATION
  Report Type: Spontaneous
  Country: GB (occurrence: GB)
  Receive Date: 20231017
  Receipt Date: 20231017
  Transmission Date: 20240110
  Serious: Yes (Death, Hospitalization, Other)
  Sender: FDA-Public Use
  Company Number: GB-009507513-2310GBR003671

PATIENT
  Age: 52 Year
  Sex: Male

DRUGS (1)
  1. KEYTRUDA [Suspect]
     Active Substance: PEMBROLIZUMAB
     Indication: Renal cell carcinoma
     Dosage: 400 MILLIGRAM, EVERY 6 WEEKS
     Dates: end: 2023

REACTIONS (4)
  - Death [Fatal]
  - Toxicity to various agents [Unknown]
  - Muscular weakness [Unknown]
  - Myocarditis [Unknown]

NARRATIVE: CASE EVENT DATE: 20230101
